FAERS Safety Report 8941770 (Version 1)
Quarter: 2012Q4

REPORT INFORMATION
  Report Type: 
  Country: BR (occurrence: BR)
  Receive Date: 20121203
  Receipt Date: 20121203
  Transmission Date: 20130627
  Serious: Yes (Other)
  Sender: FDA-Public Use
  Company Number: PHHY2012BR110113

PATIENT
  Age: 45 Year
  Sex: Female
  Weight: 106 kg

DRUGS (3)
  1. CATAFLAM [Suspect]
     Indication: RHEUMATOID ARTHRITIS
     Dosage: 1 DF, QD (daily)
     Route: 048
  2. CATAFLAM [Suspect]
     Dosage: 1 DF, every 6 hrs
     Route: 048
     Dates: start: 20121126
  3. FERROUS SULFATE [Suspect]

REACTIONS (20)
  - Genital disorder female [Unknown]
  - Tendonitis [Unknown]
  - Dysmorphism [Unknown]
  - Local swelling [Unknown]
  - Blister [Unknown]
  - Arthropod bite [Not Recovered/Not Resolved]
  - Hepatic pain [Unknown]
  - Lid sulcus deepened [Unknown]
  - Swelling [Unknown]
  - Animal scratch [Unknown]
  - Knee deformity [Unknown]
  - Arthralgia [Unknown]
  - Pain [Not Recovered/Not Resolved]
  - Movement disorder [Not Recovered/Not Resolved]
  - Musculoskeletal chest pain [Unknown]
  - Abasia [Unknown]
  - Chromaturia [Not Recovered/Not Resolved]
  - Visual impairment [Unknown]
  - Headache [Recovering/Resolving]
  - Nausea [Unknown]
